FAERS Safety Report 9787270 (Version 1)
Quarter: 2013Q4

REPORT INFORMATION
  Report Type: Report from Study
  Country: DE (occurrence: DE)
  Receive Date: 20131230
  Receipt Date: 20131230
  Transmission Date: 20140711
  Serious: Yes (Hospitalization)
  Sender: FDA-Public Use
  Company Number: DE-ROCHE-1325398

PATIENT
  Sex: 0

DRUGS (2)
  1. RANIBIZUMAB [Suspect]
     Indication: IRIS NEOVASCULARISATION
     Dosage: AT BASELINE
     Route: 050
  2. RANIBIZUMAB [Suspect]
     Indication: GLAUCOMA
     Dosage: IF NECESSARY ON A MONTHLY BASIS
     Route: 050

REACTIONS (2)
  - Hip fracture [Unknown]
  - Arrhythmia [Unknown]
